FAERS Safety Report 12737692 (Version 3)
Quarter: 2018Q3

REPORT INFORMATION
  Report Type: Spontaneous
  Country: US (occurrence: US)
  Receive Date: 20160912
  Receipt Date: 20180928
  Transmission Date: 20181010
  Serious: No
  Sender: FDA-Public Use
  Company Number: US-SA-2016SA116878

PATIENT
  Age: 63 Year
  Sex: Male

DRUGS (5)
  1. HUMULIN U [Concomitant]
     Active Substance: INSULIN HUMAN
     Dosage: 10 DF,UNK
  2. TOUJEO [Suspect]
     Active Substance: INSULIN GLARGINE
     Indication: TYPE 2 DIABETES MELLITUS
     Dosage: 20 TO 30 UNITS, BID
  3. TOUJEO [Suspect]
     Active Substance: INSULIN GLARGINE
     Dosage: 60 U, QD
     Route: 065
     Dates: start: 20180913
  4. HUMULIN U [Concomitant]
     Active Substance: INSULIN HUMAN
     Dosage: 20 DF,UNK
  5. HUMULIN U [Concomitant]
     Active Substance: INSULIN HUMAN
     Dosage: 30 DF,UNK

REACTIONS (2)
  - Blood glucose increased [Unknown]
  - Product use issue [Unknown]
